FAERS Safety Report 11894747 (Version 1)
Quarter: 2016Q1

REPORT INFORMATION
  Report Type: Spontaneous
  Country: US (occurrence: US)
  Receive Date: 20160107
  Receipt Date: 20160107
  Transmission Date: 20160526
  Serious: No
  Sender: FDA-Public Use
  Company Number: US-DRREDDYS-USA/USA/15/0049667

PATIENT
  Age: 58 Year
  Sex: Female
  Weight: 96.1 kg

DRUGS (3)
  1. LISINOPRIL. [Concomitant]
     Active Substance: LISINOPRIL
     Indication: PRODUCT USED FOR UNKNOWN INDICATION
     Route: 065
  2. HABITROL [Suspect]
     Active Substance: NICOTINE
     Route: 062
  3. HABITROL [Suspect]
     Active Substance: NICOTINE
     Indication: SMOKING CESSATION THERAPY
     Route: 062
     Dates: start: 20150715

REACTIONS (2)
  - Product adhesion issue [Unknown]
  - Wrong technique in product usage process [Unknown]
